FAERS Safety Report 4691926-2 (Version None)
Quarter: 2005Q2

REPORT INFORMATION
  Report Type: 
  Country: None (occurrence: None)
  Receive Date: 20050614
  Receipt Date: 20050602
  Transmission Date: 20051028
  Serious: No
  Sender: FDA-Public Use
  Company Number: US014926

PATIENT
  Age: 22 Month
  Sex: Female

DRUGS (1)
  1. ACTIQ [Suspect]
     Dates: start: 20030725, end: 20030725

REACTIONS (1)
  - ACCIDENTAL DRUG INTAKE BY CHILD [None]
